FAERS Safety Report 24387782 (Version 2)
Quarter: 2024Q4

REPORT INFORMATION
  Report Type: Spontaneous
  Country: ES (occurrence: ES)
  Receive Date: 20241002
  Receipt Date: 20241105
  Transmission Date: 20250115
  Serious: Yes (Hospitalization, Other)
  Sender: NOVARTIS
  Company Number: ES-002147023-NVSC2024ES192741

PATIENT
  Age: 69 Year
  Sex: Male

DRUGS (1)
  1. IMATINIB [Suspect]
     Active Substance: IMATINIB
     Indication: Chronic myeloid leukaemia
     Dosage: UNK
     Route: 065

REACTIONS (4)
  - Cardiac failure [Unknown]
  - Anaemia [Unknown]
  - Renal failure [Unknown]
  - Atrial fibrillation [Unknown]
